FAERS Safety Report 16035085 (Version 3)
Quarter: 2019Q2

REPORT INFORMATION
  Report Type: Spontaneous
  Country: US (occurrence: US)
  Receive Date: 20190305
  Receipt Date: 20190614
  Transmission Date: 20190711
  Serious: No
  Sender: FDA-Public Use
  Company Number: US-BIOGEN-2019BI00690488

PATIENT
  Sex: Male

DRUGS (1)
  1. TECFIDERA [Suspect]
     Active Substance: DIMETHYL FUMARATE
     Indication: MULTIPLE SCLEROSIS
     Route: 050
     Dates: start: 20130415

REACTIONS (5)
  - Poor quality sleep [Unknown]
  - Neutrophil count decreased [Not Recovered/Not Resolved]
  - Fatigue [Unknown]
  - Blood bilirubin increased [Not Recovered/Not Resolved]
  - Flushing [Unknown]
